FAERS Safety Report 11074195 (Version 3)
Quarter: 2015Q2

REPORT INFORMATION
  Report Type: Spontaneous
  Country: US (occurrence: None)
  Receive Date: 20150427
  Receipt Date: 20150623
  Transmission Date: 20150821
  Serious: Yes (Hospitalization)
  Sender: FDA-Public Use
  Company Number: US-H14001-15-00604

PATIENT
  Age: 68 Year

DRUGS (4)
  1. ADRIAMYCIN [Suspect]
     Active Substance: DOXORUBICIN HYDROCHLORIDE
     Indication: CHRONIC LYMPHOCYTIC LEUKAEMIA
     Dosage: 100 MG, 50 MG/M2 EVERY 21 DAYS), INTRAVENOUS (NOT OTHERWISE SPECIFIED)
     Route: 042
     Dates: start: 20111207, end: 20111228
  2. CYTOXAN [Suspect]
     Active Substance: CYCLOPHOSPHAMIDE
     Indication: CHRONIC LYMPHOCYTIC LEUKAEMIA
     Dosage: 1500 MG, D1 EVERY 21 DAYS, INTRAVENOUS (NOT OTHERWISE SPECIFIED)??
     Route: 042
     Dates: start: 20111207, end: 20120118
  3. VINCRISTINE (VINCRISTINE) (UNKNOWN) (VINCRISTINE) [Suspect]
     Active Substance: VINCRISTINE
     Indication: CHRONIC LYMPHOCYTIC LEUKAEMIA
     Dosage: 2 MG, D1 EVERY 21 DAYS) , INTRAVENOUS (NOT OTHERWISE SPECIFIED)
     Route: 042
     Dates: start: 20111207, end: 20120118
  4. PREDNISONE. [Suspect]
     Active Substance: PREDNISONE
     Indication: CHRONIC LYMPHOCYTIC LEUKAEMIA
     Dosage: 80 MG, D1-5 EVERY 21 DAYS, ORAL
     Route: 048
     Dates: start: 20111207, end: 20120118

REACTIONS (2)
  - Neutropenia [None]
  - Anaemia [None]

NARRATIVE: CASE EVENT DATE: 20120106
